FAERS Safety Report 7531585-4 (Version None)
Quarter: 2011Q2

REPORT INFORMATION
  Report Type: 
  Country: None (occurrence: None)
  Receive Date: 20110601
  Receipt Date: 20110518
  Transmission Date: 20111010
  Serious: Yes (Hospitalization)
  Sender: FDA-Public Use
  Company Number: DSJ-2011-09817

PATIENT
  Age: 75 Year
  Sex: Female

DRUGS (2)
  1. NEBIVOLOL HCL [Suspect]
  2. AMLODIPINE BESYLATE AND OLMESARTAN MEDOXOMIL [Suspect]
     Indication: HYPERTENSION
     Dosage: 20/5 MG (1 IN 1 D), PER ORAL
     Route: 048
     Dates: start: 20100901, end: 20110501

REACTIONS (2)
  - OEDEMA PERIPHERAL [None]
  - JOINT ARTHROPLASTY [None]
